FAERS Safety Report 9324274 (Version 1)
Quarter: 2013Q2

REPORT INFORMATION
  Report Type: Spontaneous
  Country: ES (occurrence: ES)
  Receive Date: 20130603
  Receipt Date: 20130603
  Transmission Date: 20140414
  Serious: Yes (Hospitalization)
  Sender: FDA-Public Use
  Company Number: ES-GE HEALTHCARE MEDICAL DIAGNOSTICS-OMPQ-E2B_00000020

PATIENT
  Age: 76 Year
  Sex: Female

DRUGS (13)
  1. OMNIPAQUE [Suspect]
     Indication: PRODUCT USED FOR UNKNOWN INDICATION
     Route: 042
     Dates: start: 20130323, end: 20130323
  2. OMNIPAQUE [Suspect]
     Indication: DIAGNOSTIC PROCEDURE
  3. APROVEL [Suspect]
     Route: 048
     Dates: start: 201210, end: 20130326
  4. NO DRUG NAME [Suspect]
  5. SINTROM [Concomitant]
     Route: 048
     Dates: start: 201210
  6. NOVOMIX 30 [Concomitant]
     Route: 058
     Dates: start: 201210
  7. DIANBEN [Concomitant]
     Route: 048
     Dates: start: 201210
  8. EUTIROX [Concomitant]
     Route: 048
     Dates: start: 201210
  9. FERRO SANOL [Concomitant]
     Route: 048
     Dates: start: 201210
  10. OPTOVITE [Concomitant]
     Route: 065
     Dates: start: 201210
  11. LORAZEPAM [Concomitant]
     Route: 048
  12. AMLODIPINE [Concomitant]
     Route: 048
     Dates: start: 201302
  13. MIRTAZAPINE [Concomitant]
     Route: 048
     Dates: start: 20130324

REACTIONS (1)
  - Renal failure acute [Recovered/Resolved]
